FAERS Safety Report 6245165-4 (Version None)
Quarter: 2009Q2

REPORT INFORMATION
  Report Type: 
  Country: None (occurrence: None)
  Receive Date: 20090623
  Receipt Date: 20090623
  Transmission Date: 20091009
  Serious: Yes (Other)
  Sender: FDA-Public Use
  Company Number: None

PATIENT
  Sex: Male
  Weight: 83.9154 kg

DRUGS (2)
  1. ZOLPIDEM [Suspect]
     Indication: INSOMNIA
     Dosage: ONE AT BEDTIME PO
     Route: 048
     Dates: start: 20090617, end: 20090618
  2. ZOLPIDEM [Suspect]
     Indication: INSOMNIA
     Dosage: ONE AT BEDTIME PO
     Route: 048
     Dates: start: 20090618, end: 20090618

REACTIONS (3)
  - AGGRESSION [None]
  - BELLIGERENCE [None]
  - PARANOIA [None]
